FAERS Safety Report 19126701 (Version 1)
Quarter: 2021Q2

REPORT INFORMATION
  Report Type: Spontaneous
  Country: US (occurrence: US)
  Receive Date: 20210413
  Receipt Date: 20210413
  Transmission Date: 20210717
  Serious: No
  Sender: FDA-Public Use
  Company Number: US-ALLERGAN-1844753US

PATIENT
  Sex: Female
  Weight: 43.99 kg

DRUGS (5)
  1. UNSPECIFIED HERBS [Concomitant]
     Active Substance: UNSPECIFIED INGREDIENT
  2. BIMATOPROST UNK [Suspect]
     Active Substance: BIMATOPROST
     Indication: PRODUCT USED FOR UNKNOWN INDICATION
     Dosage: 2 GTT, QHS
     Route: 061
     Dates: start: 201808
  3. PROBIOTICS [Concomitant]
     Active Substance: PROBIOTICS NOS
     Dosage: UNK (NOT EVERY DAY)
  4. VITAMINS [Concomitant]
     Active Substance: VITAMINS
     Dosage: UNK (ON AND OFF)
  5. MASCARA [Concomitant]
     Dosage: UNK

REACTIONS (4)
  - Dark circles under eyes [Not Recovered/Not Resolved]
  - Accidental exposure to product [Unknown]
  - Blepharal pigmentation [Not Recovered/Not Resolved]
  - Drug ineffective [Unknown]
